FAERS Safety Report 6122216-9 (Version None)
Quarter: 2009Q1

REPORT INFORMATION
  Report Type: 
  Country: None (occurrence: None)
  Receive Date: 20090316
  Receipt Date: 20090311
  Transmission Date: 20090719
  Serious: Yes (Life-Threatening)
  Sender: FDA-Public Use
  Company Number: GXKR2009DE03013

PATIENT
  Age: 66 Year
  Sex: Male

DRUGS (4)
  1. DILTIAZEM [Suspect]
     Indication: HYPERTENSION
     Dosage: 120 MG, QD, ORAL
     Route: 048
     Dates: end: 20090206
  2. DOXEPIN HCL [Suspect]
     Indication: DEPRESSION
     Dosage: PRN, ORAL
     Route: 048
  3. DIOVAN HCT [Concomitant]
  4. VALPROAT ^AZUPHARMA^ (VALPROATE SODIUM) [Concomitant]

REACTIONS (1)
  - ATRIOVENTRICULAR BLOCK SECOND DEGREE [None]
